FAERS Safety Report 6095095-6 (Version None)
Quarter: 2009Q1

REPORT INFORMATION
  Report Type: 
  Country: None (occurrence: None)
  Receive Date: 20090227
  Receipt Date: 20080121
  Transmission Date: 20090719
  Serious: No
  Sender: FDA-Public Use
  Company Number: A0703877A

PATIENT
  Age: 53 Year
  Sex: Female

DRUGS (2)
  1. LAMICTAL [Suspect]
     Indication: BIPOLAR DISORDER
     Dosage: 25MG PER DAY
     Route: 048
     Dates: start: 20080101
  2. CLONAZEPAM [Concomitant]

REACTIONS (2)
  - ADVERSE EVENT [None]
  - RASH [None]
